FAERS Safety Report 18367000 (Version 2)
Quarter: 2020Q4

REPORT INFORMATION
  Report Type: Spontaneous
  Country: US (occurrence: US)
  Receive Date: 20201009
  Receipt Date: 20201105
  Transmission Date: 20210114
  Serious: Yes (Hospitalization, Other)
  Sender: FDA-Public Use
  Company Number: US-ASTRAZENECA-2020SF28005

PATIENT
  Age: 19040 Day
  Sex: Male
  Weight: 127.5 kg

DRUGS (33)
  1. METFORMIN [Concomitant]
     Active Substance: METFORMIN HYDROCHLORIDE
  2. AMOX TR-K CLV [Concomitant]
     Active Substance: AMOXICILLIN\CLAVULANATE POTASSIUM
  3. LISINOPRIL. [Concomitant]
     Active Substance: LISINOPRIL
  4. TOUJEO [Concomitant]
     Active Substance: INSULIN GLARGINE
  5. TERBINAFINE HCL [Concomitant]
     Active Substance: TERBINAFINE HYDROCHLORIDE
  6. SULFAMETHOXAZOLE [Concomitant]
     Active Substance: SULFAMETHOXAZOLE
  7. ASPIRIN. [Concomitant]
     Active Substance: ASPIRIN
  8. TRESIBA [Concomitant]
     Active Substance: INSULIN DEGLUDEC
  9. METRONIDAZOLE. [Concomitant]
     Active Substance: METRONIDAZOLE
  10. FLAGYL [Concomitant]
     Active Substance: METRONIDAZOLE\METRONIDAZOLE HYDROCHLORIDE
  11. NOVOLOG [Concomitant]
     Active Substance: INSULIN ASPART
  12. INVOKANA [Concomitant]
     Active Substance: CANAGLIFLOZIN
  13. DOXYCYCLINE HYCLATE. [Concomitant]
     Active Substance: DOXYCYCLINE HYCLATE
  14. FARXIGA [Suspect]
     Active Substance: DAPAGLIFLOZIN PROPANEDIOL
     Indication: WEIGHT DECREASED
     Route: 048
     Dates: start: 20160406, end: 201808
  15. ESCITALOPRAM [Concomitant]
     Active Substance: ESCITALOPRAM OXALATE
  16. LYRICA [Concomitant]
     Active Substance: PREGABALIN
  17. FARXIGA [Suspect]
     Active Substance: DAPAGLIFLOZIN PROPANEDIOL
     Indication: BLOOD PRESSURE DECREASED
     Route: 048
     Dates: start: 20160406, end: 201808
  18. DIPHENOXYLATE-ATROP [Concomitant]
     Active Substance: ATROPINE SULFATE\DIPHENOXYLATE HYDROCHLORIDE
  19. AMOXICILLIN. [Concomitant]
     Active Substance: AMOXICILLIN
  20. TRULICITY [Concomitant]
     Active Substance: DULAGLUTIDE
  21. LACTIC ACID. [Concomitant]
     Active Substance: LACTIC ACID
  22. PREDNISONE. [Concomitant]
     Active Substance: PREDNISONE
  23. VALACYCLOVIR HCL [Concomitant]
     Active Substance: VALACYCLOVIR HYDROCHLORIDE
  24. HYDROCODONE-ACETAMIN [Concomitant]
     Active Substance: ACETAMINOPHEN\HYDROCODONE
  25. VANCO [Concomitant]
     Active Substance: VANCOMYCIN
  26. CALCIUM [Concomitant]
     Active Substance: CALCIUM
  27. FARXIGA [Suspect]
     Active Substance: DAPAGLIFLOZIN PROPANEDIOL
     Indication: TYPE 2 DIABETES MELLITUS
     Route: 048
     Dates: start: 20160406, end: 201808
  28. CRESTOR [Concomitant]
     Active Substance: ROSUVASTATIN CALCIUM
  29. BYDUREON [Concomitant]
     Active Substance: EXENATIDE
  30. CEPHALEXIN. [Concomitant]
     Active Substance: CEPHALEXIN
  31. BACTRIM [Concomitant]
     Active Substance: SULFAMETHOXAZOLE\TRIMETHOPRIM
  32. ZOSYN [Concomitant]
     Active Substance: PIPERACILLIN SODIUM\TAZOBACTAM SODIUM
  33. VIAGRA [Concomitant]
     Active Substance: SILDENAFIL CITRATE

REACTIONS (5)
  - Testicular swelling [Unknown]
  - Scrotal cellulitis [Unknown]
  - Groin abscess [Unknown]
  - Necrotising soft tissue infection [Unknown]
  - Groin infection [Unknown]

NARRATIVE: CASE EVENT DATE: 20180731
